FAERS Safety Report 8263390-8 (Version None)
Quarter: 2012Q2

REPORT INFORMATION
  Report Type: 
  Country: None (occurrence: None)
  Receive Date: 20120405
  Receipt Date: 20120328
  Transmission Date: 20120825
  Serious: Yes (Hospitalization)
  Sender: FDA-Public Use
  Company Number: US-MPIJNJ-2011-06628

PATIENT
  Age: 10 Year
  Sex: Female
  Weight: 20.8 kg

DRUGS (8)
  1. PREDNISONE [Suspect]
     Indication: B PRECURSOR TYPE ACUTE LEUKAEMIA
     Dosage: 20 MG/M2, CYCLIC
     Route: 048
     Dates: start: 20111214, end: 20111227
  2. DOXORUBICIN HCL [Suspect]
     Indication: B PRECURSOR TYPE ACUTE LEUKAEMIA
     Dosage: 60 MG/M2, CYCLIC
     Route: 042
     Dates: start: 20111214, end: 20111214
  3. CYTARABINE [Suspect]
     Indication: B PRECURSOR TYPE ACUTE LEUKAEMIA
     Dosage: UNK
     Route: 037
     Dates: end: 20111229
  4. PEGASPARGASE [Suspect]
     Indication: B PRECURSOR TYPE ACUTE LEUKAEMIA
     Dosage: UNK
     Dates: start: 20111215, end: 20111229
  5. VINCRISTINE [Suspect]
     Indication: B PRECURSOR TYPE ACUTE LEUKAEMIA
     Dosage: 1.5 MG/M2, CYCLIC
     Route: 040
     Dates: start: 20111214, end: 20111229
  6. METHOTREXATE [Suspect]
     Indication: B PRECURSOR TYPE ACUTE LEUKAEMIA
     Dosage: UNK
     Route: 037
     Dates: end: 20111229
  7. VELCADE [Suspect]
     Indication: B PRECURSOR TYPE ACUTE LEUKAEMIA
     Dosage: 1.3 MG/M2, CYCLIC
     Route: 040
     Dates: start: 20111214, end: 20111217
  8. HYDROCORTISONE [Suspect]
     Indication: B PRECURSOR TYPE ACUTE LEUKAEMIA
     Dosage: UNK
     Dates: end: 20111229

REACTIONS (17)
  - HYPOPHOSPHATAEMIA [None]
  - RASH PUSTULAR [None]
  - BACK PAIN [None]
  - HEADACHE [None]
  - ABDOMINAL PAIN [None]
  - NEURALGIA [None]
  - HYPONATRAEMIA [None]
  - NAUSEA [None]
  - HYPOKALAEMIA [None]
  - HYPOXIA [None]
  - PAIN IN EXTREMITY [None]
  - HYPOTENSION [None]
  - FEBRILE NEUTROPENIA [None]
  - RESPIRATORY TRACT INFECTION [None]
  - CAECITIS [None]
  - ENTEROCOLITIS INFECTIOUS [None]
  - FUNGAEMIA [None]
